FAERS Safety Report 14739403 (Version 2)
Quarter: 2018Q2

REPORT INFORMATION
  Report Type: Report from Study
  Country: US (occurrence: US)
  Receive Date: 20180410
  Receipt Date: 20180417
  Transmission Date: 20180711
  Serious: Yes (Hospitalization)
  Sender: FDA-Public Use
  Company Number: US-ASTRAZENECA-2018SE44642

PATIENT
  Age: 25220 Day
  Sex: Male

DRUGS (2)
  1. DURVALUMAB. [Suspect]
     Active Substance: DURVALUMAB
     Indication: OESOPHAGEAL ADENOCARCINOMA
     Dosage: 10MG/KG IV ON DAYS 1 AND 15 OF EACH 28D CYCLE
     Route: 042
  2. DURVALUMAB. [Suspect]
     Active Substance: DURVALUMAB
     Indication: OESOPHAGEAL ADENOCARCINOMA
     Dosage: 10MG/KG IV ON DAYS 1 AND 15 OF EACH 28D CYCLE
     Route: 042
     Dates: start: 20171129, end: 20171129

REACTIONS (2)
  - Vomiting [Recovered/Resolved]
  - Diarrhoea [Recovered/Resolved]

NARRATIVE: CASE EVENT DATE: 20171217
